FAERS Safety Report 6291957-5 (Version None)
Quarter: 2009Q3

REPORT INFORMATION
  Report Type: 
  Country: None (occurrence: None)
  Receive Date: 20090729
  Receipt Date: 20090722
  Transmission Date: 20100115
  Serious: Yes (Hospitalization)
  Sender: FDA-Public Use
  Company Number: 2009SP016316

PATIENT
  Age: 53 Year
  Sex: Female

DRUGS (4)
  1. TEMODAR [Suspect]
     Indication: EPENDYMOMA
  2. DEPOCYT [Suspect]
     Indication: METASTASES TO MENINGES
     Dosage: 50 MG; ONCE; INTH
     Route: 037
     Dates: start: 20090504, end: 20090504
  3. ONDANSETRON [Concomitant]
  4. DEXAMETHASONE [Concomitant]

REACTIONS (8)
  - ALANINE AMINOTRANSFERASE INCREASED [None]
  - ASPARTATE AMINOTRANSFERASE INCREASED [None]
  - BALANCE DISORDER [None]
  - EPENDYMOMA [None]
  - FALL [None]
  - METASTASES TO MENINGES [None]
  - NEOPLASM PROGRESSION [None]
  - PLATELET COUNT DECREASED [None]
